FAERS Safety Report 4297451-5 (Version None)
Quarter: 2004Q1

REPORT INFORMATION
  Report Type: 
  Country: None (occurrence: None)
  Receive Date: 20040218
  Receipt Date: 20040206
  Transmission Date: 20041129
  Serious: Yes (Other)
  Sender: FDA-Public Use
  Company Number: JP-ROCHE-358916

PATIENT
  Age: 10 Year
  Sex: Female

DRUGS (1)
  1. TAMIFLU [Suspect]
     Dosage: FORMULATION REPORTED AS 3% DRY SYRUP.
     Route: 048
     Dates: start: 20040203, end: 20040204

REACTIONS (1)
  - ERYTHEMA MULTIFORME [None]
